FAERS Safety Report 13389552 (Version 5)
Quarter: 2017Q2

REPORT INFORMATION
  Report Type: Spontaneous
  Country: MX (occurrence: MX)
  Receive Date: 20170331
  Receipt Date: 20170623
  Transmission Date: 20170830
  Serious: Yes (Life-Threatening)
  Sender: FDA-Public Use
  Company Number: MX-APOTEX-2017AP009281

PATIENT
  Age: 49 Year
  Sex: Male

DRUGS (2)
  1. PAXIL [Suspect]
     Active Substance: PAROXETINE HYDROCHLORIDE
     Indication: OBSESSIVE-COMPULSIVE DISORDER
     Dosage: 40 MG, QD
     Route: 065
     Dates: start: 2002
  2. PAXIL [Suspect]
     Active Substance: PAROXETINE HYDROCHLORIDE
     Indication: DEPRESSION
     Dosage: UNK
     Route: 065

REACTIONS (20)
  - Negative thoughts [Not Recovered/Not Resolved]
  - Laceration [Unknown]
  - Poor quality sleep [Unknown]
  - Fear [Not Recovered/Not Resolved]
  - Drug dose omission [Unknown]
  - Anxiety [Not Recovered/Not Resolved]
  - Tic [Unknown]
  - Pruritus genital [Unknown]
  - Feeling of despair [Unknown]
  - Thinking abnormal [Unknown]
  - Depressed mood [Unknown]
  - Compulsive handwashing [Unknown]
  - Fear of death [Unknown]
  - Obsessive-compulsive symptom [Unknown]
  - Treatment noncompliance [Unknown]
  - Weight increased [Unknown]
  - Disease recurrence [Unknown]
  - Obsessive thoughts [Not Recovered/Not Resolved]
  - Nervousness [Not Recovered/Not Resolved]
  - Off label use [Unknown]

NARRATIVE: CASE EVENT DATE: 2002
